FAERS Safety Report 15569430 (Version 1)
Quarter: 2018Q4

REPORT INFORMATION
  Report Type: Spontaneous
  Country: US (occurrence: US)
  Receive Date: 20181030
  Receipt Date: 20181030
  Transmission Date: 20190205
  Serious: Yes (Life-Threatening)
  Sender: FDA-Public Use
  Company Number: None

PATIENT
  Age: 79 Year
  Sex: Male
  Weight: 73 kg

DRUGS (7)
  1. DEXAMETHASONE. [Concomitant]
     Active Substance: DEXAMETHASONE
     Dates: start: 20181030, end: 20181030
  2. PALONOSETRON. [Concomitant]
     Active Substance: PALONOSETRON HYDROCHLORIDE
     Dates: start: 20181030, end: 20181030
  3. FOSAPREPITANT [Concomitant]
     Active Substance: FOSAPREPITANT
     Dates: start: 20181030, end: 20181030
  4. LARTRUVO [Suspect]
     Active Substance: OLARATUMAB
     Indication: ANGIOSARCOMA METASTATIC
     Dosage: ?          OTHER FREQUENCY:ONCE;?
     Route: 042
     Dates: start: 20181030, end: 20181030
  5. DIPHENHYDRAMINE. [Concomitant]
     Active Substance: DIPHENHYDRAMINE
     Dates: start: 20181030, end: 20181030
  6. LARTRUVO [Suspect]
     Active Substance: OLARATUMAB
     Indication: ANGIOSARCOMA
     Dosage: ?          OTHER FREQUENCY:ONCE;?
     Route: 042
     Dates: start: 20181030, end: 20181030
  7. DOXORUBICIN [Concomitant]
     Active Substance: DOXORUBICIN
     Dates: start: 20181030, end: 20181030

REACTIONS (2)
  - Anaphylactic reaction [None]
  - Unresponsive to stimuli [None]

NARRATIVE: CASE EVENT DATE: 20181030
